FAERS Safety Report 10482676 (Version 1)
Quarter: 2014Q3

REPORT INFORMATION
  Report Type: Spontaneous
  Country: IL (occurrence: IL)
  Receive Date: 20140929
  Receipt Date: 20140929
  Transmission Date: 20150326
  Serious: Yes (Other)
  Sender: FDA-Public Use
  Company Number: PHHY2014IL125537

PATIENT

DRUGS (5)
  1. ADRIAMYCIN [Suspect]
     Active Substance: DOXORUBICIN HYDROCHLORIDE
     Indication: EXTRAMAMMARY PAGET^S DISEASE
  2. CAPECITABINE [Suspect]
     Active Substance: CAPECITABINE
     Indication: EXTRAMAMMARY PAGET^S DISEASE
  3. CYCLOPHOSPHAMIDE. [Suspect]
     Active Substance: CYCLOPHOSPHAMIDE
     Indication: EXTRAMAMMARY PAGET^S DISEASE
  4. LAPATINIB [Suspect]
     Active Substance: LAPATINIB
     Indication: EXTRAMAMMARY PAGET^S DISEASE
     Dosage: UNK
  5. LETROZOLE. [Suspect]
     Active Substance: LETROZOLE
     Indication: EXTRAMAMMARY PAGET^S DISEASE

REACTIONS (4)
  - Malignant neoplasm progression [Unknown]
  - Pathological fracture [Unknown]
  - Extramammary Paget^s disease [Unknown]
  - Therapeutic response decreased [Unknown]
